FAERS Safety Report 4767220-8 (Version None)
Quarter: 2005Q3

REPORT INFORMATION
  Report Type: 
  Country: None (occurrence: None)
  Receive Date: 20050913
  Receipt Date: 20050831
  Transmission Date: 20060218
  Serious: Yes (Life-Threatening, Hospitalization)
  Sender: FDA-Public Use
  Company Number: PHBS2005JP12684

PATIENT
  Age: 26 Year
  Sex: Female

DRUGS (3)
  1. IMIPRAMINE HCL [Suspect]
     Indication: BIPOLAR I DISORDER
     Route: 048
  2. LITHIUM CARBONATE [Concomitant]
     Route: 048
  3. BENZODIAZEPINE DERIVATIVES [Concomitant]
     Route: 048

REACTIONS (16)
  - ANTIDEPRESSANT DRUG LEVEL INCREASED [None]
  - CARDIAC MASSAGE [None]
  - CARDIO-RESPIRATORY ARREST [None]
  - CONVULSION [None]
  - DEPRESSED LEVEL OF CONSCIOUSNESS [None]
  - DIALYSIS [None]
  - DRUG TOXICITY [None]
  - ELECTROMECHANICAL DISSOCIATION [None]
  - HAEMODIALYSIS [None]
  - INTRA-AORTIC BALLOON PLACEMENT [None]
  - INTUBATION [None]
  - MYDRIASIS [None]
  - OVERDOSE [None]
  - PUPILLARY REFLEX IMPAIRED [None]
  - RESUSCITATION [None]
  - VENTRICULAR TACHYCARDIA [None]
